FAERS Safety Report 7647411-9 (Version None)
Quarter: 2011Q3

REPORT INFORMATION
  Report Type: 
  Country: None (occurrence: None)
  Receive Date: 20110729
  Receipt Date: 20110729
  Transmission Date: 20111222
  Serious: Yes (Life-Threatening, Hospitalization)
  Sender: FDA-Public Use
  Company Number: None

PATIENT
  Sex: Female
  Weight: 52.6173 kg

DRUGS (1)
  1. MIRENA [Suspect]

REACTIONS (3)
  - UTERINE PERFORATION [None]
  - MEDICAL DEVICE COMPLICATION [None]
  - DEVICE DISLOCATION [None]
